FAERS Safety Report 8974175 (Version 1)
Quarter: 2012Q4

REPORT INFORMATION
  Report Type: Spontaneous
  Country: AU (occurrence: None)
  Receive Date: 20121211
  Receipt Date: 20121211
  Transmission Date: 20130627
  Serious: Yes (Hospitalization)
  Sender: FDA-Public Use
  Company Number: DSA_61300_2012

PATIENT
  Age: 50 Year
  Sex: Male

DRUGS (2)
  1. METRONIDAZOLE [Suspect]
     Indication: ABSCESS
  2. CIPROFLOXACIN [Concomitant]

REACTIONS (9)
  - Deafness [None]
  - Fatigue [None]
  - Dizziness [None]
  - Vomiting [None]
  - Balance disorder [None]
  - Ataxia [None]
  - Dysarthria [None]
  - Encephalitis viral [None]
  - Meningitis bacterial [None]
